FAERS Safety Report 5181462-1 (Version None)
Quarter: 2006Q4

REPORT INFORMATION
  Report Type: 
  Country: None (occurrence: None)
  Receive Date: 20061220
  Receipt Date: 20060117
  Transmission Date: 20070319
  Serious: Yes (Other)
  Sender: FDA-Public Use
  Company Number: US-GLAXOSMITHKLINE-A0589805A

PATIENT
  Sex: Male

DRUGS (1)
  1. COMMIT [Suspect]
     Dosage: 2MG UNKNOWN
     Dates: start: 20050901

REACTIONS (2)
  - DRUG ABUSER [None]
  - NICOTINE DEPENDENCE [None]
